FAERS Safety Report 5864323-1 (Version None)
Quarter: 2008Q3

REPORT INFORMATION
  Report Type: 
  Country: None (occurrence: None)
  Receive Date: 20080829
  Receipt Date: 20080610
  Transmission Date: 20090109
  Serious: No
  Sender: FDA-Public Use
  Company Number: US-ABBOTT-08P-163-0456089-00

PATIENT
  Sex: Female
  Weight: 134.38 kg

DRUGS (7)
  1. SIMCOR [Suspect]
     Indication: HIGH DENSITY LIPOPROTEIN DECREASED
     Dosage: ONE 500/20 MG TABLET
     Dates: start: 20080515
  2. INEGY [Concomitant]
     Indication: BLOOD CHOLESTEROL INCREASED
     Dates: start: 20080515, end: 20080515
  3. VENLAFAXINE HYDROCHLORIDE [Concomitant]
     Indication: DEPRESSION
     Route: 048
  4. ACETYLSALICYLIC ACID SRT [Concomitant]
     Indication: CARDIOVASCULAR EVENT PROPHYLAXIS
     Route: 048
  5. LORATADINE [Concomitant]
     Indication: HYPERSENSITIVITY
     Route: 048
  6. ATENOLOL [Concomitant]
     Indication: PALPITATIONS
     Route: 048
  7. PHENTERMINE [Concomitant]
     Indication: DECREASED APPETITE
     Route: 048

REACTIONS (2)
  - FLUSHING [None]
  - PRURITUS [None]
